FAERS Safety Report 14506659 (Version 3)
Quarter: 2021Q3

REPORT INFORMATION
  Report Type: Spontaneous
  Country: US (occurrence: US)
  Receive Date: 20180208
  Receipt Date: 20210906
  Transmission Date: 20211014
  Serious: Yes (Disabling)
  Sender: FDA-Public Use
  Company Number: US-TEVA-2018-US-854240

PATIENT
  Age: 45 Year
  Sex: Female
  Weight: 57 kg

DRUGS (35)
  1. DOCETAXEL SAGENT [Suspect]
     Active Substance: DOCETAXEL
     Indication: BREAST CANCER FEMALE
     Dosage: 6CYCLES, ONCE 3 WEEKS ON 30?APR?2014, 21?MAY?2014, 11?JUN?2014, 2?JUL?2014, 23?JUL?2014, 13?AUG?2014
     Route: 065
     Dates: start: 20140430, end: 20140813
  2. ACICLOVIR [Concomitant]
     Active Substance: ACYCLOVIR
     Dosage: 1600 MILLIGRAM DAILY; AS REQUIRED
  3. PROCHLORPERAZINE. [Concomitant]
     Active Substance: PROCHLORPERAZINE
     Dosage: 6CYCLES, ONCE 3 WEEKS ON 30?APR?2014, 21?MAY?2014, 11?JUN?2014, 2?JUL?2014, 23?JUL?2014, 13?AUG?2014
  4. SYNTHROID [Concomitant]
     Active Substance: LEVOTHYROXINE SODIUM
     Indication: HYPOTHYROIDISM
     Dosage: 75 MICROGRAM DAILY; CONTINUING
     Route: 048
     Dates: start: 20120301
  5. SYNTHROID [Concomitant]
     Active Substance: LEVOTHYROXINE SODIUM
     Dosage: 150 MICROGRAM DAILY; CONTINUING
     Route: 048
  6. OLANZAPINE. [Concomitant]
     Active Substance: OLANZAPINE
     Dosage: CONTINUING
     Dates: start: 20110101
  7. TOPAMAX [Concomitant]
     Active Substance: TOPIRAMATE
     Indication: NECK PAIN
     Dosage: 50 MILLIGRAM DAILY; BED TIME, CONTINUING
     Route: 048
     Dates: start: 20120101
  8. VITAMIN D [Concomitant]
     Active Substance: VITAMIN D NOS
     Indication: VITAMIN D DEFICIENCY
     Route: 048
     Dates: start: 20130703
  9. TRIMTERENE?HCTZ [Concomitant]
     Dosage: 1 DOSAGE FORMS DAILY; 37.5?25MG
     Route: 048
     Dates: end: 20131127
  10. SIMVASTATIN. [Concomitant]
     Active Substance: SIMVASTATIN
     Dosage: 20 MILLIGRAM DAILY;
  11. FENTANYL TRANSDERMAL SYSTEM [Concomitant]
     Active Substance: FENTANYL
     Indication: CANCER PAIN
  12. DIAZEPAM. [Concomitant]
     Active Substance: DIAZEPAM
     Dosage: 5 MILLIGRAM DAILY;
     Route: 048
     Dates: start: 20140601, end: 20140615
  13. CYCLOBENZAPRINE HCL [Concomitant]
     Active Substance: CYCLOBENZAPRINE HYDROCHLORIDE
     Indication: BACK PAIN
     Dosage: CONTINUING, 1/2 TO 1 TABLET
     Route: 048
     Dates: start: 20120201
  14. GABAPENTIN. [Concomitant]
     Active Substance: GABAPENTIN
     Dosage: CONTINUING
     Dates: start: 20110101
  15. OXYCODONE [Concomitant]
     Active Substance: OXYCODONE
     Dosage: CONTINUING
     Dates: start: 20110101
  16. MUPIROCIN. [Concomitant]
     Active Substance: MUPIROCIN
     Dates: start: 20140607
  17. NEULASTA [Concomitant]
     Active Substance: PEGFILGRASTIM
     Dosage: ON 1?MAY?2014, 22?MAY?2014, 12?JUN?2014, 3?JUL?2014, 24?JUL?2014, 14?AUG?2014
  18. IMITREX [Concomitant]
     Active Substance: SUMATRIPTAN SUCCINATE
  19. VICODIN [Concomitant]
     Active Substance: ACETAMINOPHEN\HYDROCODONE BITARTRATE
     Indication: NECK PAIN
     Dosage: 5MG/500MG
     Route: 048
  20. FENTANYL TRANSDERMAL SYSTEM [Concomitant]
     Active Substance: FENTANYL
     Indication: NECK PAIN
     Route: 062
     Dates: start: 20140524
  21. CYCLOPHOSPHAMIDE. [Suspect]
     Active Substance: CYCLOPHOSPHAMIDE
     Indication: BREAST CANCER FEMALE
     Dosage: 6CYCLES, ONCE 3 WEEKS ON 30?APR?2014, 21?MAY?2014, 11?JUN?2014, 2?JUL?2014, 23?JUL?2014, 13?AUG?2014
     Route: 042
     Dates: start: 20140430, end: 20140813
  22. SPIRONOLACTONE. [Concomitant]
     Active Substance: SPIRONOLACTONE
     Indication: ANDROGENETIC ALOPECIA
     Dosage: CONTINUING
     Dates: start: 20110101
  23. LORAZEPAM. [Concomitant]
     Active Substance: LORAZEPAM
  24. LISINOPRIL HCTZ [Concomitant]
     Active Substance: HYDROCHLOROTHIAZIDE\LISINOPRIL
     Dosage: CONTINUING
     Dates: start: 20110101
  25. OXYCODONE?ACETAMINOPHEN [Concomitant]
     Active Substance: ACETAMINOPHEN\OXYCODONE HYDROCHLORIDE
     Indication: INSOMNIA
  26. ALPRAZOLAM. [Concomitant]
     Active Substance: ALPRAZOLAM
     Route: 048
     Dates: start: 20140617
  27. SARNA (PRAMOXINE HYDROCHLORIDE) [Concomitant]
     Active Substance: PRAMOXINE HYDROCHLORIDE
     Dates: start: 20140211
  28. OXYCODONE?ACETAMINOPHEN [Concomitant]
     Active Substance: ACETAMINOPHEN\OXYCODONE HYDROCHLORIDE
     Indication: NECK PAIN
     Dosage: CONTINUING 5?125MG ONCE/6 HOURS
     Route: 048
     Dates: start: 20140717
  29. VENLAFAXINE HYDROCHLORIDE ER [Concomitant]
     Active Substance: VENLAFAXINE HYDROCHLORIDE
     Indication: DEPRESSION
     Dates: start: 20110101
  30. TRIAMCINOLONE [Concomitant]
     Active Substance: TRIAMCINOLONE
     Indication: VITILIGO
     Route: 061
  31. DOXORUBICIN [Suspect]
     Active Substance: DOXORUBICIN
     Indication: BREAST CANCER FEMALE
     Dosage: 6CYCLES, ONCE 3 WEEKS ON 30?APR?2014, 21?MAY?2014, 11?JUN?2014, 2?JUL?2014, 23?JUL?2014, 13?AUG?2014
     Route: 042
     Dates: start: 20140430, end: 20140813
  32. ZOLPIDEM TARTRATE. [Concomitant]
     Active Substance: ZOLPIDEM TARTRATE
     Indication: INSOMNIA
     Dosage: 10 MILLIGRAM DAILY; CONTINUING, NIGHT
     Route: 048
     Dates: start: 20110101
  33. DEXAMETHASONE. [Concomitant]
     Active Substance: DEXAMETHASONE
     Dosage: 16 MILLIGRAM DAILY; 6CYCLES, ONCE 3 WEEKS WITH CHEMOTHERAPY
  34. VENLAFAXINE HYDROCHLORIDE ER [Concomitant]
     Active Substance: VENLAFAXINE HYDROCHLORIDE
     Dates: start: 20110101
  35. NAPROXEN. [Concomitant]
     Active Substance: NAPROXEN
     Dosage: 1000 MILLIGRAM DAILY; CONTINUING AS REQUIRED
     Route: 048
     Dates: start: 20110101

REACTIONS (12)
  - Diffuse alopecia [Not Recovered/Not Resolved]
  - Seborrhoeic dermatitis [Recovering/Resolving]
  - Madarosis [Not Recovered/Not Resolved]
  - Hair colour changes [Not Recovered/Not Resolved]
  - Cognitive disorder [Unknown]
  - Memory impairment [Unknown]
  - Hair texture abnormal [Not Recovered/Not Resolved]
  - Motor dysfunction [Unknown]
  - Alopecia areata [Not Recovered/Not Resolved]
  - Urticaria papular [Unknown]
  - Alopecia [Not Recovered/Not Resolved]
  - Trichorrhexis [Not Recovered/Not Resolved]

NARRATIVE: CASE EVENT DATE: 2014
